FAERS Safety Report 25895109 (Version 1)
Quarter: 2025Q4

REPORT INFORMATION
  Report Type: Spontaneous
  Country: AU (occurrence: AU)
  Receive Date: 20251008
  Receipt Date: 20251008
  Transmission Date: 20260118
  Serious: Yes (Other)
  Sender: MACLEODS
  Company Number: AU-MACLEODS PHARMA-MAC2025055629

PATIENT

DRUGS (6)
  1. RIVASTIGMINE [Suspect]
     Active Substance: RIVASTIGMINE
     Indication: Dementia
     Route: 065
     Dates: start: 201804
  2. SUCCINYLCHOLINE [Suspect]
     Active Substance: SUCCINYLCHOLINE
     Indication: Induction of anaesthesia
     Route: 065
     Dates: start: 2022
  3. DULOXETINE [Concomitant]
     Active Substance: DULOXETINE
     Route: 065
  4. QUETIAPINE [Concomitant]
     Active Substance: QUETIAPINE
     Route: 065
  5. LITHIUM [Concomitant]
     Active Substance: LITHIUM
     Route: 065
  6. THIOPENTAL SODIUM [Concomitant]
     Active Substance: THIOPENTAL SODIUM
     Indication: Induction of anaesthesia
     Route: 065
     Dates: start: 2022

REACTIONS (5)
  - Apnoea [Recovered/Resolved]
  - Pseudocholinesterase deficiency [Unknown]
  - Unmasking of previously unidentified disease [Unknown]
  - Delayed recovery from anaesthesia [Recovered/Resolved]
  - Drug interaction [Recovered/Resolved]

NARRATIVE: CASE EVENT DATE: 20210101
